FAERS Safety Report 17651417 (Version 2)
Quarter: 2020Q2

REPORT INFORMATION
  Report Type: Report from Study
  Country: US (occurrence: US)
  Receive Date: 20200409
  Receipt Date: 20200602
  Transmission Date: 20200713
  Serious: No
  Sender: FDA-Public Use
  Company Number: NVSC2020US094637

PATIENT
  Sex: Male

DRUGS (1)
  1. COSENTYX [Suspect]
     Active Substance: SECUKINUMAB
     Indication: PSORIATIC ARTHROPATHY
     Dosage: 150 MG, OTHER (150MG Q WEEKLY X 5 WEEKS THEN 150MG Q 4 WEEKS)
     Route: 058
     Dates: start: 20191108

REACTIONS (1)
  - Arthritis [Unknown]
